FAERS Safety Report 18683453 (Version 1)
Quarter: 2020Q4

REPORT INFORMATION
  Report Type: Other
  Country: GB (occurrence: GB)
  Receive Date: 20201230
  Receipt Date: 20201230
  Transmission Date: 20210114
  Serious: No
  Sender: FDA-Public Use
  Company Number: GB-LUPIN PHARMACEUTICALS INC.-2020-10854

PATIENT
  Age: 76 Year
  Sex: Female
  Weight: 60.78 kg

DRUGS (5)
  1. BALNEUM PLUS [POLIDOCANOL;UREA] [Concomitant]
     Indication: PRODUCT USED FOR UNKNOWN INDICATION
     Dosage: UNK, PRN (EVERY DAY WHEN REQUIRED)
     Route: 065
     Dates: start: 20200911
  2. SIMVASTATIN. [Suspect]
     Active Substance: SIMVASTATIN
     Indication: PAIN IN EXTREMITY
     Dosage: UNK
     Route: 048
  3. ATORVASTATIN [Concomitant]
     Active Substance: ATORVASTATIN
     Dosage: UNK, QD (EVERYDAY)
     Route: 065
     Dates: start: 20200907
  4. ATORVASTATIN [Concomitant]
     Active Substance: ATORVASTATIN
     Indication: PRODUCT USED FOR UNKNOWN INDICATION
     Dosage: UNK, QD (EVERY DAY)
     Route: 065
     Dates: start: 20200907, end: 20201118
  5. LANSOPRAZOLE. [Concomitant]
     Active Substance: LANSOPRAZOLE
     Indication: PRODUCT USED FOR UNKNOWN INDICATION
     Dosage: 1 DOSAGE FORM, QD (TAKE ONE ONCE DAILY)
     Route: 065
     Dates: start: 20200911

REACTIONS (1)
  - Sneezing [Recovered/Resolved]

NARRATIVE: CASE EVENT DATE: 20201118
